FAERS Safety Report 12755633 (Version 2)
Quarter: 2016Q4

REPORT INFORMATION
  Report Type: Report from Study
  Country: None (occurrence: NL)
  Receive Date: 20160916
  Receipt Date: 20161004
  Transmission Date: 20170207
  Serious: Yes (Hospitalization)
  Sender: FDA-Public Use
  Company Number: NL-ABBVIE-14P-114-1272794-00

PATIENT
  Age: 43 Year
  Sex: Female
  Weight: 85 kg

DRUGS (4)
  1. LUCRIN [Suspect]
     Active Substance: LEUPROLIDE ACETATE
     Route: 058
  2. LUCRIN [Suspect]
     Active Substance: LEUPROLIDE ACETATE
     Indication: ENDOMETRIOSIS
     Route: 058
     Dates: start: 20140521
  3. LUCRIN [Suspect]
     Active Substance: LEUPROLIDE ACETATE
     Route: 058
  4. TIBOLON [Concomitant]
     Indication: PRODUCT USED FOR UNKNOWN INDICATION
     Route: 048
     Dates: start: 20141024

REACTIONS (7)
  - Hysterectomy [Unknown]
  - Injection site pain [Recovered/Resolved]
  - Uterine adhesions [Unknown]
  - Abdominal pain [Not Recovered/Not Resolved]
  - Hot flush [Not Recovered/Not Resolved]
  - Abdominal pain [Recovered/Resolved]
  - Back pain [Not Recovered/Not Resolved]

NARRATIVE: CASE EVENT DATE: 201406
